FAERS Safety Report 20211705 (Version 1)
Quarter: 2021Q4

REPORT INFORMATION
  Report Type: Spontaneous
  Country: US (occurrence: None)
  Receive Date: 20211221
  Receipt Date: 20211221
  Transmission Date: 20220303
  Serious: Yes (Death, Hospitalization)
  Sender: FDA-Public Use
  Company Number: None

PATIENT
  Sex: Female
  Weight: 51.1 kg

DRUGS (5)
  1. CYTARABINE [Suspect]
     Active Substance: CYTARABINE
  2. DAUNORUBICIN [Concomitant]
  3. DEXAMETHASONE [Concomitant]
     Active Substance: DEXAMETHASONE
  4. METHOTREXATE [Concomitant]
     Active Substance: METHOTREXATE
  5. PEG-L-ASPARAGINASE, ONCOSPAR) [Concomitant]

REACTIONS (3)
  - Myelodysplastic syndrome [None]
  - Pneumonia cytomegaloviral [None]
  - Pneumonia staphylococcal [None]

NARRATIVE: CASE EVENT DATE: 20211123
